FAERS Safety Report 12503474 (Version 1)
Quarter: 2016Q2

REPORT INFORMATION
  Report Type: Spontaneous
  Country: US (occurrence: US)
  Receive Date: 20160628
  Receipt Date: 20160628
  Transmission Date: 20160815
  Serious: No
  Sender: FDA-Public Use
  Company Number: US-PFIZER INC-2016292122

PATIENT
  Age: 59 Year
  Sex: Female

DRUGS (4)
  1. ARMOUR THYROID [Suspect]
     Active Substance: THYROID, PORCINE
     Indication: HYPOTHYROIDISM
     Dosage: 75 MG, 1X/DAY
     Route: 048
     Dates: start: 2006, end: 201601
  2. ARMOUR THYROID [Suspect]
     Active Substance: THYROID, PORCINE
     Dosage: 60 MG, 1X/DAY
     Route: 048
     Dates: start: 201605
  3. METOPROLOL. [Concomitant]
     Active Substance: METOPROLOL
     Indication: HYPERTENSION
  4. LEVOTHYROXINE SODIUM. [Suspect]
     Active Substance: LEVOTHYROXINE SODIUM
     Indication: HYPOTHYROIDISM
     Dosage: UNK
     Dates: start: 201601, end: 201605

REACTIONS (4)
  - Heart rate increased [Recovered/Resolved]
  - Hypertension [Recovered/Resolved]
  - Blood thyroid stimulating hormone increased [Recovered/Resolved]
  - Feeling jittery [Recovered/Resolved]

NARRATIVE: CASE EVENT DATE: 201605
